FAERS Safety Report 9202290 (Version 2)
Quarter: 2013Q2

REPORT INFORMATION
  Report Type: Spontaneous
  Country: JP (occurrence: JP)
  Receive Date: 20130401
  Receipt Date: 20130403
  Transmission Date: 20140414
  Serious: Yes (Other)
  Sender: FDA-Public Use
  Company Number: PHHY2013JP025733

PATIENT
  Age: 9 Year
  Sex: Male

DRUGS (4)
  1. CICLOSPORIN [Suspect]
     Indication: BONE MARROW TRANSPLANT
  2. METHOTREXATE [Suspect]
     Indication: PROPHYLAXIS AGAINST GRAFT VERSUS HOST DISEASE
  3. METHOTREXATE [Suspect]
     Indication: BONE MARROW TRANSPLANT
  4. ANTITHYMOCYTE IMMUNOGLOBULIN [Concomitant]

REACTIONS (4)
  - Thrombotic microangiopathy [Recovering/Resolving]
  - Graft versus host disease in intestine [Unknown]
  - Abdominal pain [Unknown]
  - Diarrhoea [Recovering/Resolving]
